FAERS Safety Report 9720907 (Version 2)
Quarter: 2014Q1

REPORT INFORMATION
  Report Type: Spontaneous
  Country: DE (occurrence: DE)
  Receive Date: 20131129
  Receipt Date: 20140131
  Transmission Date: 20141002
  Serious: No
  Sender: FDA-Public Use
  Company Number: DE-JNJFOC-20131113654

PATIENT
  Sex: Male

DRUGS (2)
  1. XEPLION [Suspect]
     Indication: PRODUCT USED FOR UNKNOWN INDICATION
     Route: 030
     Dates: start: 201305
  2. DIAZEPAM [Concomitant]
     Route: 065

REACTIONS (1)
  - Drug ineffective [Unknown]
